FAERS Safety Report 4839475-2 (Version None)
Quarter: 2005Q4

REPORT INFORMATION
  Report Type: 
  Country: None (occurrence: None)
  Receive Date: 20051129
  Receipt Date: 20051021
  Transmission Date: 20060501
  Serious: Yes (Other)
  Sender: FDA-Public Use
  Company Number: AU-GLAXOSMITHKLINE-B0398410A

PATIENT
  Age: 46 Year
  Sex: Male

DRUGS (6)
  1. NICABATE CQ CLEAR 21MG [Suspect]
     Dosage: 21MG PER DAY
     Route: 062
     Dates: start: 20051007
  2. FLUPENTHIXOL [Concomitant]
  3. VALIUM [Concomitant]
  4. LITHIUM [Concomitant]
  5. ZYPREXA [Concomitant]
  6. VITAMINS [Concomitant]

REACTIONS (5)
  - FATIGUE [None]
  - HALLUCINATION [None]
  - HYPERSOMNIA [None]
  - NAUSEA [None]
  - THINKING ABNORMAL [None]
